FAERS Safety Report 10602747 (Version 2)
Quarter: 2014Q4

REPORT INFORMATION
  Report Type: Not Available
  Country: FR (occurrence: FR)
  Receive Date: 20141124
  Receipt Date: 20141202
  Transmission Date: 20150529
  Serious: Yes (Life-Threatening, Hospitalization)
  Sender: FDA-Public Use
  Company Number: FR-MUNDIPHARMA DS AND PHARMACOVIGILANCE-GBR-2014-0024096

PATIENT
  Age: 66 Year
  Sex: Female

DRUGS (17)
  1. SERESTA [Suspect]
     Active Substance: OXAZEPAM
     Indication: PRODUCT USED FOR UNKNOWN INDICATION
     Dosage: 25 MG, DAILY
     Route: 048
  2. LAROXYL [Concomitant]
     Active Substance: AMITRIPTYLINE
     Dosage: 125 MG, DAILY
     Route: 048
  3. OXYNORM 10 MG, GELULE [Suspect]
     Active Substance: OXYCODONE HYDROCHLORIDE
     Dosage: 30 MG, DAILY
     Route: 048
  4. LEVOTHYROX [Concomitant]
     Active Substance: LEVOTHYROXINE
     Dosage: 100 MCG, DAILY
  5. ESOMEPRAZOLE [Concomitant]
     Active Substance: ESOMEPRAZOLE
     Dosage: 40 MG, DAILY
     Route: 048
  6. ALLOPURINOL. [Concomitant]
     Active Substance: ALLOPURINOL
     Dosage: 100 MG, DAILY
     Route: 048
  7. QUESTRAN [Concomitant]
     Active Substance: CHOLESTYRAMINE
     Dosage: 12 G, DAILY
  8. OXYNORM 10 MG, GELULE [Suspect]
     Active Substance: OXYCODONE HYDROCHLORIDE
     Indication: PAIN
     Dosage: UNK, SEE TEXT
     Route: 048
     Dates: start: 201407, end: 201407
  9. LEXOMIL ROCHE [Suspect]
     Active Substance: BROMAZEPAM
     Dosage: 1 TABLET, DAILY
     Route: 048
  10. CERIS [Concomitant]
     Active Substance: TROSPIUM CHLORIDE
     Dosage: 40 MG, DAILY
     Route: 048
  11. LEXOMIL ROCHE [Suspect]
     Active Substance: BROMAZEPAM
     Indication: PRODUCT USED FOR UNKNOWN INDICATION
     Dosage: UNK, SEE TEXT
     Route: 048
     Dates: start: 201407, end: 201407
  12. DUROGESIC [Suspect]
     Active Substance: FENTANYL
     Indication: PRODUCT USED FOR UNKNOWN INDICATION
     Dosage: 75 MCG, Q1H
     Route: 062
     Dates: start: 201407, end: 201407
  13. DEPAKOTE [Suspect]
     Active Substance: DIVALPROEX SODIUM
     Indication: PRODUCT USED FOR UNKNOWN INDICATION
     Dosage: 1000 MG, DAILY
     Route: 048
  14. ZYPREXA [Suspect]
     Active Substance: OLANZAPINE
     Indication: PRODUCT USED FOR UNKNOWN INDICATION
     Dosage: 5 MG, DAILY
     Route: 048
  15. LOPERAMIDE [Concomitant]
     Active Substance: LOPERAMIDE
     Dosage: UNK, PRN
  16. SMECTA [Concomitant]
     Active Substance: MONTMORILLONITE
     Dosage: UNK, PRN
  17. PROZAC [Concomitant]
     Active Substance: FLUOXETINE HYDROCHLORIDE
     Dosage: 40 MG, DAILY
     Route: 048

REACTIONS (3)
  - Overdose [Recovered/Resolved]
  - Coma [Recovered/Resolved]
  - Pneumonia aspiration [Recovered/Resolved]

NARRATIVE: CASE EVENT DATE: 20140727
